FAERS Safety Report 9904124 (Version 1)
Quarter: 2014Q1

REPORT INFORMATION
  Report Type: Spontaneous
  Country: US (occurrence: US)
  Receive Date: 20140218
  Receipt Date: 20140218
  Transmission Date: 20141002
  Serious: No
  Sender: FDA-Public Use
  Company Number: US-BIOGENIDEC-2014BI013270

PATIENT
  Age: 40 Year
  Sex: Female

DRUGS (23)
  1. TECFIDERA [Suspect]
     Indication: MULTIPLE SCLEROSIS
     Route: 048
     Dates: start: 201307
  2. ADDERALL [Concomitant]
  3. ALLEGRA [Concomitant]
  4. ASPIRIN [Concomitant]
  5. DIOVAN [Concomitant]
  6. DRISDOL [Concomitant]
  7. FERROUS SULFATE [Concomitant]
  8. MODAFINIL [Concomitant]
  9. FLUOXETINE [Concomitant]
  10. NEURONTIN [Concomitant]
  11. NORVASC [Concomitant]
  12. POTASSIUM [Concomitant]
  13. OXYBUTYNIN [Concomitant]
  14. SINGULAIR [Concomitant]
  15. SEASONIQUE [Concomitant]
  16. SYNTHROID [Concomitant]
  17. THERA TEARS [Concomitant]
  18. THERA TEARS NUTRITION [Concomitant]
  19. VALIUM [Concomitant]
  20. VICODIN [Concomitant]
  21. VITAMIN D [Concomitant]
  22. VITAMIN B-12 [Concomitant]
  23. ZOMETA [Concomitant]

REACTIONS (1)
  - Muscle spasticity [Unknown]
